FAERS Safety Report 10911805 (Version 1)
Quarter: 2015Q1

REPORT INFORMATION
  Report Type: Report from Study
  Country: US (occurrence: None)
  Receive Date: 20150309
  Receipt Date: 20150309
  Transmission Date: 20150721
  Serious: Yes (Hospitalization, Other)
  Sender: FDA-Public Use
  Company Number: 2014SA134076

PATIENT
  Age: 30 Year
  Sex: Female

DRUGS (4)
  1. AVONEX [Concomitant]
     Active Substance: INTERFERON BETA-1A
  2. AUBAGIO [Suspect]
     Active Substance: TERIFLUNOMIDE
     Indication: MULTIPLE SCLEROSIS
     Route: 048
     Dates: start: 20140905
  3. TYSABRI [Concomitant]
     Active Substance: NATALIZUMAB
  4. COPAXONE [Concomitant]
     Active Substance: GLATIRAMER ACETATE

REACTIONS (8)
  - Nausea [None]
  - Genital herpes [None]
  - Abasia [None]
  - Vaginal haemorrhage [None]
  - Impaired driving ability [None]
  - Speech disorder [None]
  - Unevaluable event [None]
  - Vomiting [None]
